FAERS Safety Report 5148886-X (Version None)
Quarter: 2006Q4

REPORT INFORMATION
  Report Type: 
  Country: None (occurrence: None)
  Receive Date: 20061113
  Receipt Date: 20061102
  Transmission Date: 20070319
  Serious: Yes (Hospitalization)
  Sender: FDA-Public Use
  Company Number: FR-JNJFOC-20061100680

PATIENT
  Age: 35 Year
  Sex: Male

DRUGS (2)
  1. REMICADE [Suspect]
     Indication: ANAL STENOSIS
     Route: 042
  2. REMICADE [Suspect]
     Indication: COLITIS ULCERATIVE
     Dosage: 1 INFUSION
     Route: 042

REACTIONS (3)
  - MYALGIA [None]
  - PURPURA [None]
  - RENAL FAILURE [None]
